FAERS Safety Report 21305356 (Version 2)
Quarter: 2025Q1

REPORT INFORMATION
  Report Type: Report from Study
  Country: US (occurrence: US)
  Receive Date: 20220908
  Receipt Date: 20250318
  Transmission Date: 20250408
  Serious: Yes (Hospitalization)
  Sender: TAKEDA
  Company Number: US-TAKEDA-US202034160

PATIENT
  Age: 7 Year
  Sex: Male

DRUGS (3)
  1. IDURSULFASE [Suspect]
     Active Substance: IDURSULFASE
     Indication: Mucopolysaccharidosis II
     Dosage: 18 MILLIGRAM, 1/WEEK
     Dates: start: 20170829
  2. IDURSULFASE [Suspect]
     Active Substance: IDURSULFASE
     Dosage: 12 MILLIGRAM, 1/WEEK
     Dates: start: 20170830
  3. IDURSULFASE [Suspect]
     Active Substance: IDURSULFASE
     Dosage: 18 MILLIGRAM, 1/WEEK
     Dates: start: 201712

REACTIONS (6)
  - Dysphagia [Unknown]
  - Drooling [Unknown]
  - Dyspnoea [Unknown]
  - Swollen tongue [Unknown]
  - Weight increased [Unknown]
  - Rash [Unknown]

NARRATIVE: CASE EVENT DATE: 20200921
